FAERS Safety Report 8066373-6 (Version None)
Quarter: 2012Q1

REPORT INFORMATION
  Report Type: 
  Country: None (occurrence: None)
  Receive Date: 20120124
  Receipt Date: 20091216
  Transmission Date: 20120608
  Serious: No
  Sender: FDA-Public Use
  Company Number: US-BAYER-200938447NA

PATIENT
  Sex: Female

DRUGS (1)
  1. CLIMARA [Suspect]
     Dosage: 0.1 MG/24HR, UNK
     Route: 062
     Dates: start: 20091001

REACTIONS (3)
  - PRODUCT ADHESION ISSUE [None]
  - URINARY TRACT INFECTION [None]
  - RASH [None]
